FAERS Safety Report 9072628 (Version 1)
Quarter: 2013Q1

REPORT INFORMATION
  Report Type: Report from Study
  Country: US (occurrence: US)
  Receive Date: 20130129
  Receipt Date: 20130129
  Transmission Date: 20140127
  Serious: No
  Sender: FDA-Public Use
  Company Number: US-ABBOTT-12P-163-0932239-00

PATIENT
  Age: 35 Year
  Sex: Female

DRUGS (11)
  1. HUMIRA 40 MG/0.8 ML PEN [Suspect]
     Indication: RHEUMATOID ARTHRITIS
     Dates: start: 201203
  2. FLUTICASONE [Concomitant]
     Indication: PRODUCT USED FOR UNKNOWN INDICATION
     Dosage: 2 SPAYS EACH NOSTRIL
     Route: 050
  3. TRAZODONE [Concomitant]
     Indication: INSOMNIA
     Dosage: 2 PILLS EVERY NIGHT
  4. NAPROXEN [Concomitant]
     Indication: INFLAMMATION
  5. METHOTREXATE [Concomitant]
     Indication: RHEUMATOID ARTHRITIS
     Dosage: 6 TABS ONCE EVERY 2WEEKS AND 7 TABS ONCE EVERY 2 WEEKS
  6. FOLIC ACID [Concomitant]
     Indication: PRODUCT USED FOR UNKNOWN INDICATION
  7. WOMEN ONCE A DAY VITAMIN [Concomitant]
     Indication: PRODUCT USED FOR UNKNOWN INDICATION
  8. LEVOTHYROXINE [Concomitant]
     Indication: HYPOTHYROIDISM
  9. CITALOPRAM [Concomitant]
     Indication: ANXIETY
     Dates: end: 20120426
  10. VENLAFAXINE [Concomitant]
     Indication: DEPRESSION
  11. CLONAZEPAM [Concomitant]
     Indication: ANXIETY

REACTIONS (9)
  - Injection site swelling [Recovering/Resolving]
  - Injection site bruising [Recovering/Resolving]
  - Injection site erythema [Unknown]
  - Injection site pruritus [Unknown]
  - Injection site warmth [Unknown]
  - Injection site papule [Unknown]
  - Injection site pruritus [Recovering/Resolving]
  - Injection site warmth [Recovering/Resolving]
  - Injection site induration [Recovering/Resolving]
